FAERS Safety Report 17214076 (Version 2)
Quarter: 2020Q1

REPORT INFORMATION
  Report Type: Spontaneous
  Country: US (occurrence: US)
  Receive Date: 20191230
  Receipt Date: 20200205
  Transmission Date: 20200409
  Serious: No
  Sender: FDA-Public Use
  Company Number: US-PFIZER INC-2019557389

PATIENT
  Age: 80 Year
  Sex: Female
  Weight: 65.31 kg

DRUGS (1)
  1. PREMARIN [Suspect]
     Active Substance: ESTROGENS, CONJUGATED
     Indication: VULVOVAGINAL DRYNESS
     Dosage: UNK, 1X/DAY [SM AMOUNT ONCE A DAY]
     Dates: start: 2018

REACTIONS (1)
  - Malaise [Unknown]
